FAERS Safety Report 5276286-0 (Version None)
Quarter: 2007Q1

REPORT INFORMATION
  Report Type: 
  Country: None (occurrence: None)
  Receive Date: 20070326
  Receipt Date: 20070316
  Transmission Date: 20070707
  Serious: Yes (Death)
  Sender: FDA-Public Use
  Company Number: IT-ABBOTT-06P-083-0336505-00

PATIENT

DRUGS (2)
  1. CLARITHROMYCIN [Suspect]
     Indication: PHARYNGOTONSILLITIS
     Route: 048
  2. FROBEN SPRAY [Suspect]
     Indication: DRUG USE FOR UNKNOWN INDICATION
     Route: 055

REACTIONS (1)
  - SUDDEN DEATH [None]
